FAERS Safety Report 8027001-9 (Version None)
Quarter: 2012Q1

REPORT INFORMATION
  Report Type: 
  Country: None (occurrence: None)
  Receive Date: 20120106
  Receipt Date: 20120103
  Transmission Date: 20120608
  Serious: Yes (Other)
  Sender: FDA-Public Use
  Company Number: US-PFIZER INC-2012001118

PATIENT
  Age: 68 Year
  Sex: Female

DRUGS (3)
  1. MELOXICAM [Suspect]
     Dosage: 7.5 MG, UNK
  2. VICODIN [Suspect]
     Dosage: UNK
  3. LYRICA [Suspect]
     Dosage: 75 MG, UNK

REACTIONS (9)
  - NERVE INJURY [None]
  - LIGAMENT PAIN [None]
  - INSOMNIA [None]
  - MYALGIA [None]
  - TENDON PAIN [None]
  - PAIN [None]
  - SYSTEMIC LUPUS ERYTHEMATOSUS [None]
  - CHRONIC OBSTRUCTIVE PULMONARY DISEASE [None]
  - INFLUENZA LIKE ILLNESS [None]
